FAERS Safety Report 6635064-8 (Version None)
Quarter: 2010Q1

REPORT INFORMATION
  Report Type: 
  Country: None (occurrence: None)
  Receive Date: 20100315
  Receipt Date: 20100309
  Transmission Date: 20100710
  Serious: Yes (Hospitalization)
  Sender: FDA-Public Use
  Company Number: US-GILEAD-2010-0027494

PATIENT
  Sex: Male

DRUGS (10)
  1. LETAIRIS [Suspect]
     Indication: PULMONARY ARTERIAL HYPERTENSION
     Route: 048
     Dates: start: 20090122
  2. ALDACTONE [Concomitant]
  3. LASIX [Concomitant]
  4. LORTAB [Concomitant]
  5. NEURONTIN [Concomitant]
  6. RESTORIL [Concomitant]
  7. GLUCOPHAGE [Concomitant]
  8. METANX [Concomitant]
  9. ALPHA LIPOIC [Concomitant]
  10. MILK THISTLE [Concomitant]

REACTIONS (1)
  - PROTEIN TOTAL INCREASED [None]
